FAERS Safety Report 24641497 (Version 3)
Quarter: 2025Q2

REPORT INFORMATION
  Report Type: Spontaneous
  Country: US (occurrence: US)
  Receive Date: 20241120
  Receipt Date: 20250411
  Transmission Date: 20250717
  Serious: No
  Sender: UNITED THERAPEUTICS
  Company Number: US-UNITED THERAPEUTICS-UNT-2024-034312

PATIENT
  Sex: Male
  Weight: 81.633 kg

DRUGS (16)
  1. REMODULIN [Suspect]
     Active Substance: TREPROSTINIL
     Indication: Pulmonary arterial hypertension
  2. REMODULIN [Suspect]
     Active Substance: TREPROSTINIL
  3. REMODULIN [Suspect]
     Active Substance: TREPROSTINIL
     Indication: Pulmonary arterial hypertension
  4. REMODULIN [Suspect]
     Active Substance: TREPROSTINIL
  5. LASIX [Concomitant]
     Active Substance: FUROSEMIDE
     Indication: Product used for unknown indication
  6. KETAMINE HYDROCHLORIDE [Concomitant]
     Active Substance: KETAMINE HYDROCHLORIDE
     Indication: Product used for unknown indication
  7. LECITHIN [Concomitant]
     Active Substance: LECITHIN
     Indication: Product used for unknown indication
  8. TADALAFIL [Concomitant]
     Active Substance: TADALAFIL
     Indication: Product used for unknown indication
  9. OPSUMIT [Concomitant]
     Active Substance: MACITENTAN
     Indication: Product used for unknown indication
  10. CLONIDINE [Concomitant]
     Active Substance: CLONIDINE
     Indication: Product used for unknown indication
  11. KETOPROFEN [Concomitant]
     Active Substance: KETOPROFEN
     Indication: Product used for unknown indication
  12. SPIRONOLACTONE [Concomitant]
     Active Substance: SPIRONOLACTONE
     Indication: Product used for unknown indication
  13. LIDOCAINE HYDROCHLORIDE [Concomitant]
     Active Substance: LIDOCAINE HYDROCHLORIDE
     Indication: Product used for unknown indication
  14. AMITRIPTYLINE HYDROCHLORIDE [Concomitant]
     Active Substance: AMITRIPTYLINE HYDROCHLORIDE
     Indication: Product used for unknown indication
  15. GABAPENTIN [Concomitant]
     Active Substance: GABAPENTIN
     Indication: Product used for unknown indication
  16. POLOXAMER [Concomitant]
     Active Substance: POLOXAMER
     Indication: Product used for unknown indication

REACTIONS (20)
  - Myalgia [Unknown]
  - Headache [Unknown]
  - Muscle spasms [Unknown]
  - Device maintenance issue [Unknown]
  - Device power source issue [Unknown]
  - Device power source issue [Unknown]
  - Device power source issue [Unknown]
  - Device power source issue [Unknown]
  - Device power source issue [Unknown]
  - Device power source issue [Unknown]
  - Device wireless communication issue [Unknown]
  - Device wireless communication issue [Unknown]
  - Device occlusion [Unknown]
  - Device delivery system issue [Unknown]
  - Device infusion issue [Unknown]
  - Device power source issue [Unknown]
  - Device issue [Unknown]
  - Device occlusion [Unknown]
  - Device infusion issue [Unknown]
  - Device issue [Unknown]

NARRATIVE: CASE EVENT DATE: 20240101
